FAERS Safety Report 4366206-5 (Version None)
Quarter: 2004Q2

REPORT INFORMATION
  Report Type: 
  Country: None (occurrence: None)
  Receive Date: 20040527
  Receipt Date: 20040220
  Transmission Date: 20050107
  Serious: No
  Sender: FDA-Public Use
  Company Number: US-BRISTOL-MYERS SQUIBB COMPANY-12514238

PATIENT
  Age: 57 Year
  Sex: Male
  Weight: 101 kg

DRUGS (1)
  1. DEFINITY [Suspect]
     Indication: ULTRASOUND SCAN
     Dosage: TWO INJECTIONS TOTALLING 0.3 CC.
     Route: 051
     Dates: start: 20040220, end: 20040220

REACTIONS (1)
  - BACK PAIN [None]
